FAERS Safety Report 6149857-7 (Version None)
Quarter: 2009Q2

REPORT INFORMATION
  Report Type: 
  Country: None (occurrence: None)
  Receive Date: 20090407
  Receipt Date: 20090323
  Transmission Date: 20091009
  Serious: Yes (Hospitalization)
  Sender: FDA-Public Use
  Company Number: DSU-2009-00716

PATIENT
  Sex: Female
  Weight: 50.8029 kg

DRUGS (3)
  1. BENICAR [Suspect]
     Indication: HYPERTENSION
     Dosage: 10 MG (10 MG,ONE-HALF 20MG TABLET QD),PER ORAL
     Route: 048
     Dates: start: 20030101
  2. ADVIL (IBUPROFEN) (IBUPROFEN) [Concomitant]
  3. MULTIVITAMIN [Concomitant]

REACTIONS (5)
  - COELIAC DISEASE [None]
  - COLITIS [None]
  - DEHYDRATION [None]
  - DRUG ADMINISTRATION ERROR [None]
  - RENAL FAILURE [None]
